FAERS Safety Report 22046340 (Version 3)
Quarter: 2023Q4

REPORT INFORMATION
  Report Type: Spontaneous
  Country: US (occurrence: US)
  Receive Date: 20230228
  Receipt Date: 20231116
  Transmission Date: 20240109
  Serious: Yes (Other)
  Sender: FDA-Public Use
  Company Number: US-GILEAD-2023-0618228

PATIENT
  Sex: Male

DRUGS (23)
  1. VIREAD [Suspect]
     Active Substance: TENOFOVIR DISOPROXIL FUMARATE
     Indication: HIV infection
     Dosage: UNK
     Route: 048
     Dates: start: 2008
  2. VIREAD [Suspect]
     Active Substance: TENOFOVIR DISOPROXIL FUMARATE
     Dosage: UNK
     Route: 048
     Dates: start: 200806, end: 201901
  3. BIKTARVY [Concomitant]
     Active Substance: BICTEGRAVIR SODIUM\EMTRICITABINE\TENOFOVIR ALAFENAMIDE FUMARATE
  4. DESCOVY [Concomitant]
     Active Substance: EMTRICITABINE\TENOFOVIR ALAFENAMIDE FUMARATE
  5. EPIVIR [Concomitant]
     Active Substance: LAMIVUDINE
  6. INTELENCE [Concomitant]
     Active Substance: ETRAVIRINE
  7. ISENTRESS [Concomitant]
     Active Substance: RALTEGRAVIR POTASSIUM
  8. NORVIR [Concomitant]
     Active Substance: RITONAVIR
  9. PREZISTA [Concomitant]
     Active Substance: DARUNAVIR ETHANOLATE
  10. REYATAZ [Concomitant]
     Active Substance: ATAZANAVIR SULFATE
  11. ZERIT [Concomitant]
     Active Substance: STAVUDINE
  12. ABILIFY [Concomitant]
     Active Substance: ARIPIPRAZOLE
  13. DULOXETINE [Concomitant]
     Active Substance: DULOXETINE
  14. RALTEGRAVIR [Concomitant]
     Active Substance: RALTEGRAVIR
  15. ALPRAZOLAM [Concomitant]
     Active Substance: ALPRAZOLAM
  16. OMEPRAZOLE [Concomitant]
     Active Substance: OMEPRAZOLE
  17. PIFELTRO [Concomitant]
     Active Substance: DORAVIRINE
  18. SEROQUEL [Concomitant]
     Active Substance: QUETIAPINE FUMARATE
  19. ROSUVASTATIN [Concomitant]
     Active Substance: ROSUVASTATIN
  20. SERTRALINE [Concomitant]
     Active Substance: SERTRALINE HYDROCHLORIDE
  21. SUSTIVA [Concomitant]
     Active Substance: EFAVIRENZ
  22. VITAMIN D3 [Concomitant]
     Active Substance: CHOLECALCIFEROL
  23. WELLBUTRIN [Concomitant]
     Active Substance: BUPROPION HYDROCHLORIDE

REACTIONS (8)
  - Renal failure [Not Recovered/Not Resolved]
  - Bipolar disorder [Not Recovered/Not Resolved]
  - Schizophrenia [Not Recovered/Not Resolved]
  - Pain [Not Recovered/Not Resolved]
  - Emotional distress [Not Recovered/Not Resolved]
  - Anxiety [Not Recovered/Not Resolved]
  - Anhedonia [Not Recovered/Not Resolved]
  - Depression [Not Recovered/Not Resolved]

NARRATIVE: CASE EVENT DATE: 20150101
